FAERS Safety Report 17956875 (Version 1)
Quarter: 2020Q2

REPORT INFORMATION
  Report Type: Spontaneous
  Country: US (occurrence: US)
  Receive Date: 20200629
  Receipt Date: 20200629
  Transmission Date: 20200714
  Serious: Yes (Death)
  Sender: FDA-Public Use
  Company Number: None

PATIENT
  Age: 75 Year
  Sex: Female

DRUGS (10)
  1. PANTOPRAZOLE 40 MG [Concomitant]
     Active Substance: PANTOPRAZOLE SODIUM
  2. MIRTAZEPINE 15 MG [Concomitant]
  3. ONDANSETRON ODT 4 MG [Concomitant]
  4. FAMOTIDINE 20 MG [Concomitant]
     Active Substance: FAMOTIDINE
  5. PREDNISONE 10 MG TABLETS [Concomitant]
     Active Substance: PREDNISONE
  6. VITAMIN D 1000 UNITS [Concomitant]
  7. PROMACTA [Suspect]
     Active Substance: ELTROMBOPAG OLAMINE
     Indication: IMMUNE THROMBOCYTOPENIA
     Route: 048
     Dates: start: 20200609, end: 20200629
  8. ENTECAVIR 0.5 MG [Suspect]
     Active Substance: ENTECAVIR
  9. POTASSIUM CL 20 MEQ TABLETS [Concomitant]
  10. VALGANCICLOVIR 450 MG [Concomitant]

REACTIONS (1)
  - Death [None]

NARRATIVE: CASE EVENT DATE: 20200629
